FAERS Safety Report 4450526-X (Version None)
Quarter: 2004Q3

REPORT INFORMATION
  Report Type: 
  Country: None (occurrence: None)
  Receive Date: 20040913
  Receipt Date: 20040729
  Transmission Date: 20050211
  Serious: No
  Sender: FDA-Public Use
  Company Number: 2004-BP-06297BP(0)

PATIENT
  Sex: Female

DRUGS (6)
  1. SPIRIVA [Suspect]
     Indication: CHRONIC OBSTRUCTIVE AIRWAYS DISEASE
     Dosage: 18 MCG (18 MCG), IH
     Route: 055
     Dates: start: 20040715
  2. ATROVENT [Suspect]
     Indication: CHRONIC OBSTRUCTIVE AIRWAYS DISEASE
     Dosage: IN
     Dates: start: 20040301
  3. DIOVAN ATC [Concomitant]
  4. EVISTA [Concomitant]
  5. MIACALCIN [Concomitant]
  6. FOSAMAX [Concomitant]

REACTIONS (2)
  - DIZZINESS [None]
  - DYSPNOEA [None]
